FAERS Safety Report 26124241 (Version 1)
Quarter: 2025Q4

REPORT INFORMATION
  Report Type: Spontaneous
  Country: US (occurrence: US)
  Receive Date: 20251205
  Receipt Date: 20251205
  Transmission Date: 20260118
  Serious: No
  Sender: NOVARTIS
  Company Number: US-002147023-NVSC2025US186015

PATIENT
  Age: 70 Year
  Sex: Female

DRUGS (3)
  1. LEQVIO [Suspect]
     Active Substance: INCLISIRAN SODIUM
     Indication: Low density lipoprotein increased
     Dosage: 284 MG, OTHER (INITIAL DOSE, AT 90 DAYS AND THEN EVERY 6 MONTHS)
     Route: 058
     Dates: start: 20250418, end: 20250418
  2. LEQVIO [Suspect]
     Active Substance: INCLISIRAN SODIUM
     Indication: Hypercholesterolaemia
     Dosage: 284 MG, OTHER (INITIAL DOSE, AT 90 DAYS AND THEN EVERY 6 MONTHS)
     Route: 058
     Dates: start: 20251029, end: 20251029
  3. LEQVIO [Suspect]
     Active Substance: INCLISIRAN SODIUM
     Dosage: 284 MG, OTHER (INITIAL DOSE, AT 90 DAYS AND THEN EVERY 6 MONTHS)
     Route: 058
     Dates: start: 20251111

REACTIONS (3)
  - Injection site reaction [Recovered/Resolved]
  - Injection site rash [Recovered/Resolved]
  - Injection site irritation [Recovered/Resolved]

NARRATIVE: CASE EVENT DATE: 20251111
